FAERS Safety Report 17342480 (Version 1)
Quarter: 2020Q1

REPORT INFORMATION
  Report Type: Spontaneous
  Country: US (occurrence: US)
  Receive Date: 20200129
  Receipt Date: 20200129
  Transmission Date: 20200409
  Serious: No
  Sender: FDA-Public Use
  Company Number: US-ALLERGAN-1926298US

PATIENT
  Sex: Female

DRUGS (1)
  1. BOTOX COSMETIC [Suspect]
     Active Substance: ONABOTULINUMTOXINA
     Indication: SKIN WRINKLING
     Dosage: ACTUAL: 10 UNITS GIVEN IN 2 UNIT INCREMENTS, SINGLE

REACTIONS (3)
  - Emotional poverty [Not Recovered/Not Resolved]
  - Vision blurred [Not Recovered/Not Resolved]
  - Adverse drug reaction [Not Recovered/Not Resolved]
